FAERS Safety Report 25957108 (Version 1)
Quarter: 2025Q4

REPORT INFORMATION
  Report Type: Spontaneous
  Country: CN (occurrence: CN)
  Receive Date: 20251024
  Receipt Date: 20251024
  Transmission Date: 20260118
  Serious: Yes (Hospitalization)
  Sender: PFIZER
  Company Number: CN-PFIZER INC-PV202500123217

PATIENT
  Age: 70 Year
  Sex: Male
  Weight: 72.5 kg

DRUGS (2)
  1. SUNITINIB MALATE [Suspect]
     Active Substance: SUNITINIB MALATE
     Indication: Renal cell carcinoma
     Dosage: 4 WEEKS FOLLOWED BY A 2-WEEK BREAK
     Route: 048
     Dates: start: 20221222, end: 20230515
  2. SINTILIMAB [Suspect]
     Active Substance: SINTILIMAB
     Indication: Renal cell carcinoma
     Dosage: 200 MG, EVERY 3 WEEKS
     Route: 042
     Dates: start: 20221222, end: 20230515

REACTIONS (1)
  - Guillain-Barre syndrome [Recovering/Resolving]

NARRATIVE: CASE EVENT DATE: 20230602
